FAERS Safety Report 4480441-7 (Version None)
Quarter: 2004Q4

REPORT INFORMATION
  Report Type: 
  Country: None (occurrence: None)
  Receive Date: 20041018
  Receipt Date: 20041001
  Transmission Date: 20050328
  Serious: Yes (Life-Threatening, Hospitalization)
  Sender: FDA-Public Use
  Company Number: EM2003-0050

PATIENT
  Age: 54 Year
  Sex: Female

DRUGS (7)
  1. L2-7001 (RHIL-2); CHIRON CORPORATION (ALDESLEUKIN) INJECTION, 0.1MCG/M [Suspect]
     Indication: LYMPHOMA
     Dosage: 270 MCG, THRICE, SUBCUTAN.
     Route: 058
     Dates: start: 20030128, end: 20030222
  2. RITUXIMAB(RITUXIMAB) [Suspect]
     Indication: LYMPHOMA
     Dosage: 375 MG/M2, QW, X4W, (WKS 1-4), INTRAVENOUS
     Route: 042
     Dates: start: 20030121, end: 20030211
  3. MULTIVITAMIN [Concomitant]
  4. PREMPRO [Concomitant]
  5. TYLENOL [Concomitant]
  6. BENADRYL [Concomitant]
  7. IBUPROFEN [Concomitant]

REACTIONS (6)
  - ACUTE MYOCARDIAL INFARCTION [None]
  - ANGIOPATHY [None]
  - CEREBRAL INFARCTION [None]
  - CEREBRAL ISCHAEMIA [None]
  - HYPERCOAGULATION [None]
  - OEDEMA PERIPHERAL [None]
